FAERS Safety Report 6070097-4 (Version None)
Quarter: 2009Q1

REPORT INFORMATION
  Report Type: 
  Country: None (occurrence: None)
  Receive Date: 20090209
  Receipt Date: 20090202
  Transmission Date: 20090719
  Serious: Yes (Other)
  Sender: FDA-Public Use
  Company Number: US-AVENTIS-200910858US

PATIENT
  Age: 70 Year
  Sex: Female

DRUGS (2)
  1. LANTUS [Suspect]
     Indication: DIABETES MELLITUS
     Route: 058
  2. OPTICLIK (INSULIN INJECTION PEN) [Suspect]
     Indication: DIABETES MELLITUS

REACTIONS (3)
  - DEVICE MALFUNCTION [None]
  - GAIT DISTURBANCE [None]
  - SURGERY [None]
